FAERS Safety Report 14047712 (Version 1)
Quarter: 2017Q4

REPORT INFORMATION
  Report Type: Spontaneous
  Country: FR (occurrence: FR)
  Receive Date: 20171005
  Receipt Date: 20171005
  Transmission Date: 20180321
  Serious: Yes (Hospitalization)
  Sender: FDA-Public Use
  Company Number: FR-JNJFOC-20170931387

PATIENT

DRUGS (4)
  1. INFLIXIMAB, RECOMBINANT [Suspect]
     Active Substance: INFLIXIMAB
     Indication: OCULAR SARCOIDOSIS
     Route: 042
  2. METHOTREXATE. [Concomitant]
     Active Substance: METHOTREXATE
     Route: 065
  3. AZATHIOPRINE. [Concomitant]
     Active Substance: AZATHIOPRINE
     Route: 065
  4. MYCOPHENOLATE MOFETIL. [Concomitant]
     Active Substance: MYCOPHENOLATE MOFETIL
     Route: 065

REACTIONS (7)
  - Bacterial sepsis [Unknown]
  - Herpes virus infection [Unknown]
  - Prostatitis [Unknown]
  - Urinary tract infection [Unknown]
  - Drug ineffective for unapproved indication [Unknown]
  - Lung infection [Unknown]
  - Off label use [Unknown]
